FAERS Safety Report 9579422 (Version 2)
Quarter: 2013Q4

REPORT INFORMATION
  Report Type: Spontaneous
  Country: US (occurrence: US)
  Receive Date: 20131001
  Receipt Date: 20131001
  Transmission Date: 20140711
  Serious: No
  Sender: FDA-Public Use
  Company Number: US-AMGEN-USASP2013007152

PATIENT
  Age: 53 Year
  Sex: Female
  Weight: 64.4 kg

DRUGS (2)
  1. ENBREL [Suspect]
     Indication: RHEUMATOID ARTHRITIS
     Dosage: 50 MG, QWK
     Route: 058
     Dates: start: 20121102
  2. LEFLUNOMIDE [Concomitant]
     Dosage: UNK
     Dates: start: 20121102

REACTIONS (11)
  - Rash [Recovered/Resolved]
  - Laceration [Recovered/Resolved]
  - Musculoskeletal stiffness [Recovered/Resolved]
  - Ear lobe infection [Recovered/Resolved]
  - Localised infection [Recovered/Resolved]
  - Staphylococcal infection [Recovered/Resolved]
  - Injection site erythema [Not Recovered/Not Resolved]
  - Injection site swelling [Not Recovered/Not Resolved]
  - Injection site pruritus [Not Recovered/Not Resolved]
  - Injection site warmth [Not Recovered/Not Resolved]
  - Injection site pain [Recovered/Resolved]
